FAERS Safety Report 5411584-9 (Version None)
Quarter: 2007Q3

REPORT INFORMATION
  Report Type: 
  Country: None (occurrence: None)
  Receive Date: 20070810
  Receipt Date: 20070731
  Transmission Date: 20080115
  Serious: Yes (Other)
  Sender: FDA-Public Use
  Company Number: US-PFIZER INC-2007050554

PATIENT
  Sex: Male
  Weight: 117.9 kg

DRUGS (9)
  1. LIPITOR [Suspect]
     Indication: BLOOD CHOLESTEROL INCREASED
  2. LIPITOR [Suspect]
     Indication: HYPERLIPIDAEMIA
  3. GLUCOSAMINE [Concomitant]
  4. ANTIHYPERTENSIVES [Concomitant]
  5. HERBAL PREPARATION [Concomitant]
  6. MONOPRIL [Concomitant]
  7. HYDROCHLOROTHIAZIDE [Concomitant]
  8. ZANTAC 150 [Concomitant]
  9. MOTRIN [Concomitant]

REACTIONS (2)
  - BLOOD CREATINE PHOSPHOKINASE INCREASED [None]
  - PAIN IN EXTREMITY [None]
